FAERS Safety Report 6736798-7 (Version None)
Quarter: 2010Q2

REPORT INFORMATION
  Report Type: 
  Country: None (occurrence: None)
  Receive Date: 20100521
  Receipt Date: 20100517
  Transmission Date: 20101027
  Serious: Yes (Other)
  Sender: FDA-Public Use
  Company Number: IE-WYE-G06030510

PATIENT
  Age: 59 Year
  Sex: Female

DRUGS (4)
  1. PREMARIN [Suspect]
     Indication: MENOPAUSAL SYMPTOMS
     Dosage: UNKNOWN
     Route: 048
     Dates: start: 19950101, end: 20100101
  2. PREMARIN [Suspect]
     Route: 048
     Dates: start: 20100101, end: 20100301
  3. ASPIRIN [Concomitant]
     Indication: HYPERTENSION
     Route: 048
     Dates: start: 20050607
  4. COZAAR [Concomitant]
     Indication: HYPERTENSION
     Route: 048
     Dates: start: 19980921

REACTIONS (3)
  - DRUG WITHDRAWAL SYNDROME [None]
  - HOT FLUSH [None]
  - SLEEP DISORDER [None]
